FAERS Safety Report 6410493-6 (Version None)
Quarter: 2009Q4

REPORT INFORMATION
  Report Type: 
  Country: None (occurrence: None)
  Receive Date: 20091022
  Receipt Date: 20091013
  Transmission Date: 20100525
  Serious: Yes (Hospitalization, Disabling, Other)
  Sender: FDA-Public Use
  Company Number: US-MERCK-0811USA03807

PATIENT
  Age: 61 Year
  Sex: Female

DRUGS (4)
  1. FOSAMAX [Suspect]
     Indication: OSTEOPOROSIS
     Route: 048
     Dates: start: 20010901, end: 20070401
  2. FOSAMAX [Suspect]
     Route: 048
     Dates: start: 20020916
  3. DOXEPIN BETA [Concomitant]
     Indication: DEPRESSION
     Route: 065
     Dates: start: 19950101
  4. CITALOPRAM HYDROBROMIDE [Concomitant]
     Indication: DEPRESSION
     Route: 065
     Dates: start: 19950101

REACTIONS (27)
  - ABSCESS [None]
  - ADVERSE DRUG REACTION [None]
  - BRONCHITIS [None]
  - CERVICAL POLYP [None]
  - COLONIC POLYP [None]
  - DENTAL CARIES [None]
  - DEPRESSION [None]
  - DEVICE BREAKAGE [None]
  - DIABETES MELLITUS [None]
  - DRUG HYPERSENSITIVITY [None]
  - DRUG INEFFECTIVE [None]
  - DRY MOUTH [None]
  - GINGIVAL BLEEDING [None]
  - GINGIVAL RECESSION [None]
  - HYPERLIPIDAEMIA [None]
  - HYPOAESTHESIA [None]
  - HYPOAESTHESIA ORAL [None]
  - JAW DISORDER [None]
  - JAW FRACTURE [None]
  - MYOCARDIAL INFARCTION [None]
  - OSTEOMYELITIS [None]
  - OSTEONECROSIS [None]
  - PAIN IN EXTREMITY [None]
  - PATHOLOGICAL FRACTURE [None]
  - PRURITUS [None]
  - TEMPOROMANDIBULAR JOINT SYNDROME [None]
  - TONGUE ULCERATION [None]
